FAERS Safety Report 7487207-4 (Version None)
Quarter: 2011Q2

REPORT INFORMATION
  Report Type: 
  Country: None (occurrence: None)
  Receive Date: 20110510
  Receipt Date: 20110427
  Transmission Date: 20111010
  Serious: Yes (Other)
  Sender: FDA-Public Use
  Company Number: 20110358

PATIENT
  Age: 52 Year
  Sex: Female
  Weight: 63.5036 kg

DRUGS (4)
  1. EPINEPHRINE [Suspect]
     Indication: ASTHMA
     Dosage: 0.3 MG/ML X 1 PER
     Dates: start: 20110426, end: 20110426
  2. DILTIAZEM [Concomitant]
  3. ARTHRITIS [Concomitant]
  4. IMITREX [Concomitant]

REACTIONS (8)
  - FEELING ABNORMAL [None]
  - CONDITION AGGRAVATED [None]
  - PALPITATIONS [None]
  - CARDIAC DISORDER [None]
  - DIZZINESS [None]
  - HEADACHE [None]
  - CHEST PAIN [None]
  - HYPOTENSION [None]
